FAERS Safety Report 5522096-6 (Version None)
Quarter: 2007Q4

REPORT INFORMATION
  Report Type: 
  Country: None (occurrence: None)
  Receive Date: 20071120
  Receipt Date: 20071114
  Transmission Date: 20080405
  Serious: Yes (Death)
  Sender: FDA-Public Use
  Company Number: US-BRISTOL-MYERS SQUIBB COMPANY-13881032

PATIENT
  Age: 36 Year
  Sex: Male

DRUGS (7)
  1. ORENCIA [Suspect]
     Indication: RHEUMATOID ARTHRITIS
     Route: 042
     Dates: start: 20070108, end: 20070604
  2. METHOTREXATE [Suspect]
     Indication: RHEUMATOID ARTHRITIS
     Route: 048
     Dates: start: 20050101
  3. PREDNISONE TAB [Suspect]
     Indication: RHEUMATOID ARTHRITIS
     Dosage: 30-60 MG DAILY FOR SEVERAL YEARS
  4. ARAVA [Concomitant]
     Indication: RHEUMATOID ARTHRITIS
     Dates: start: 20060101
  5. INFLIXIMAB [Concomitant]
     Dates: start: 20060101
  6. ADALIMUMAB [Concomitant]
     Dates: start: 20060101
  7. ETANERCEPT [Concomitant]
     Dates: start: 20050101

REACTIONS (2)
  - PULMONARY EMBOLISM [None]
  - RESPIRATORY DISTRESS [None]
